FAERS Safety Report 9066189 (Version 1)
Quarter: 2013Q1

REPORT INFORMATION
  Report Type: Report from Study
  Country: US (occurrence: US)
  Receive Date: 20130131
  Receipt Date: 20130131
  Transmission Date: 20140127
  Serious: No
  Sender: FDA-Public Use
  Company Number: US-ABBOTT-12P-163-1016587-00

PATIENT
  Age: 36 Year
  Sex: Male

DRUGS (7)
  1. HUMIRA [Suspect]
     Indication: CROHN^S DISEASE
     Dates: start: 201204
  2. AZATHIOPRINE [Concomitant]
     Indication: PRODUCT USED FOR UNKNOWN INDICATION
     Dosage: 200MG DAILY
  3. HYOSCYAMINE [Concomitant]
     Indication: NAUSEA
  4. HYOSCYAMINE [Concomitant]
     Indication: MUSCLE SPASMS
  5. OMEPRAZOLE [Concomitant]
     Indication: PRODUCT USED FOR UNKNOWN INDICATION
     Dosage: 20MG DAILY
  6. PREDNISONE [Concomitant]
     Indication: CROHN^S DISEASE
     Dosage: CURRENTLY 30MG DAILY
  7. PREDNISONE [Concomitant]
     Dosage: TAPERING DOSE DOWN 5MG EVERY 4 DAYS

REACTIONS (4)
  - Diarrhoea [Not Recovered/Not Resolved]
  - Injection site haemorrhage [Not Recovered/Not Resolved]
  - Abdominal pain [Not Recovered/Not Resolved]
  - Injection site urticaria [Not Recovered/Not Resolved]
